FAERS Safety Report 4994205-9 (Version None)
Quarter: 2006Q1

REPORT INFORMATION
  Report Type: 
  Country: None (occurrence: None)
  Receive Date: 20060313
  Receipt Date: 20051214
  Transmission Date: 20060701
  Serious: Yes (Other)
  Sender: FDA-Public Use
  Company Number: PHEH2005US10126

PATIENT
  Age: 47 Year
  Sex: Female
  Weight: 80.7 kg

DRUGS (11)
  1. TRILEPTAL [Suspect]
     Indication: BIPOLAR DISORDER
     Dosage: 1500 MG, QD
  2. TRILEPTAL [Suspect]
     Dosage: 700 MG,QD,ORAL
     Route: 048
     Dates: start: 20050101, end: 20050101
  3. DEPAKOTE [Concomitant]
  4. MELLARIL [Concomitant]
  5. EFFEXOR [Concomitant]
  6. MELATONIN (MELATONIN) [Concomitant]
  7. VALPROIC ACID [Concomitant]
  8. CYTOMEL [Concomitant]
  9. DALMANE [Concomitant]
  10. SUBUTEX [Concomitant]
  11. RISPERDAL [Concomitant]

REACTIONS (6)
  - BLOOD CHLORIDE DECREASED [None]
  - DIARRHOEA [None]
  - HYPONATRAEMIA [None]
  - MALAISE [None]
  - NEUTROPHIL COUNT DECREASED [None]
  - WHITE BLOOD CELL COUNT DECREASED [None]
